FAERS Safety Report 25488281 (Version 1)
Quarter: 2025Q2

REPORT INFORMATION
  Report Type: Spontaneous
  Country: US (occurrence: US)
  Receive Date: 20250627
  Receipt Date: 20250627
  Transmission Date: 20250716
  Serious: No
  Sender: MERCK SHARP & DOHME LLC
  Company Number: US-009507513-2296499

PATIENT
  Age: 79 Year
  Sex: Female

DRUGS (2)
  1. VERQUVO [Suspect]
     Active Substance: VERICIGUAT
     Dosage: 2.5 MG TABLET DAILY WITH FOOD
     Route: 048
  2. VERQUVO [Suspect]
     Active Substance: VERICIGUAT
     Dosage: 2.5 MG TABLET DAILY WITH FOOD
     Route: 048

REACTIONS (2)
  - Drug hypersensitivity [Recovered/Resolved]
  - Drug hypersensitivity [Recovered/Resolved]
